FAERS Safety Report 17236416 (Version 1)
Quarter: 2020Q1

REPORT INFORMATION
  Report Type: Spontaneous
  Country: CH (occurrence: CH)
  Receive Date: 20200106
  Receipt Date: 20200106
  Transmission Date: 20200409
  Serious: Yes (Hospitalization)
  Sender: FDA-Public Use
  Company Number: CH-AVADEL LEGACY PHARMACEUTICALS, LLC-2019AVA00097

PATIENT
  Age: 25 Year
  Sex: Female
  Weight: 59 kg

DRUGS (2)
  1. ATROPINE. [Concomitant]
     Active Substance: ATROPINE
     Dosage: 0.5 MG
     Route: 042
  2. PHENYLEPHRINE [Suspect]
     Active Substance: PHENYLEPHRINE HYDROCHLORIDE
     Indication: HYPOTENSION
     Dosage: 100 ?G, BOLUS
     Route: 042

REACTIONS (1)
  - Reversible cerebral vasoconstriction syndrome [Recovered/Resolved]
